FAERS Safety Report 6442780-X (Version None)
Quarter: 2009Q4

REPORT INFORMATION
  Report Type: 
  Country: None (occurrence: None)
  Receive Date: 20091117
  Receipt Date: 20091109
  Transmission Date: 20100525
  Serious: Yes (Hospitalization, Other)
  Sender: FDA-Public Use
  Company Number: PHHO2009FR06242

PATIENT
  Sex: Female

DRUGS (3)
  1. IMATINIB [Suspect]
     Indication: CHRONIC MYELOID LEUKAEMIA
     Dosage: 400MG DAILY
     Route: 048
     Dates: start: 20071030
  2. IMATINIB [Suspect]
     Dosage: UNK
     Route: 048
     Dates: start: 20090902
  3. DIGOXIN [Suspect]

REACTIONS (14)
  - BRADYCARDIA [None]
  - BUNDLE BRANCH BLOCK LEFT [None]
  - CARDIAC FAILURE ACUTE [None]
  - CARDIAC PACEMAKER INSERTION [None]
  - DYSPNOEA [None]
  - HEART RATE ABNORMAL [None]
  - HYPERTENSION [None]
  - HYPERTENSIVE CARDIOMYOPATHY [None]
  - LEFT VENTRICULAR END-DIASTOLIC PRESSURE INCREASED [None]
  - LEFT VENTRICULAR FAILURE [None]
  - MALAISE [None]
  - RENAL FAILURE [None]
  - SINOATRIAL BLOCK [None]
  - WHEEZING [None]
